FAERS Safety Report 9696235 (Version 1)
Quarter: 2013Q4

REPORT INFORMATION
  Report Type: Report from Study
  Country: US (occurrence: US)
  Receive Date: 20131119
  Receipt Date: 20131119
  Transmission Date: 20140711
  Serious: No
  Sender: FDA-Public Use
  Company Number: US-TEVA-445137USA

PATIENT
  Sex: Male

DRUGS (1)
  1. NUVIGIL [Suspect]
     Dosage: 150 MILLIGRAM DAILY;

REACTIONS (3)
  - Anger [Unknown]
  - Abnormal behaviour [Unknown]
  - Accident [Unknown]
